FAERS Safety Report 21590243 (Version 1)
Quarter: 2022Q4

REPORT INFORMATION
  Report Type: Spontaneous
  Country: US (occurrence: US)
  Receive Date: 20221114
  Receipt Date: 20221114
  Transmission Date: 20230112
  Serious: Yes (Other)
  Sender: FDA-Public Use
  Company Number: US-BRISTOL-MYERS SQUIBB COMPANY-2022-136244

PATIENT
  Age: 68 Year
  Sex: Female

DRUGS (7)
  1. REVLIMID [Suspect]
     Active Substance: LENALIDOMIDE
     Indication: Plasma cell myeloma
     Route: 048
     Dates: start: 20210721, end: 20221101
  2. ACYCLOVIR [Concomitant]
     Active Substance: ACYCLOVIR
  3. VELCADE [Concomitant]
     Active Substance: BORTEZOMIB
  4. ZOMETA [Concomitant]
     Active Substance: ZOLEDRONIC ACID
  5. ASPIRIN [Concomitant]
     Active Substance: ASPIRIN
  6. VITAMINS [Concomitant]
     Active Substance: VITAMINS
  7. CALCIUM [Concomitant]
     Active Substance: CALCIUM

REACTIONS (2)
  - Neutropenia [Unknown]
  - Off label use [Unknown]

NARRATIVE: CASE EVENT DATE: 20221101
